FAERS Safety Report 5798441-3 (Version None)
Quarter: 2008Q2

REPORT INFORMATION
  Report Type: 
  Country: None (occurrence: None)
  Receive Date: 20080630
  Receipt Date: 20080619
  Transmission Date: 20081010
  Serious: Yes (Other)
  Sender: FDA-Public Use
  Company Number: 2008AP000272

PATIENT
  Age: 44 Year
  Sex: Female

DRUGS (13)
  1. PAROXETINE HCL [Suspect]
     Indication: DRUG USE FOR UNKNOWN INDICATION
     Dosage: 20 MG; QD; PO; 30 MG, QD; PO; 20MG, QD, PO; 40 MG, QD, PO
     Route: 048
     Dates: start: 19990326
  2. PAROXETINE HCL [Suspect]
     Indication: DRUG USE FOR UNKNOWN INDICATION
     Dosage: 20 MG; QD; PO; 30 MG, QD; PO; 20MG, QD, PO; 40 MG, QD, PO
     Route: 048
     Dates: start: 20000329
  3. PAROXETINE HCL [Suspect]
     Indication: DRUG USE FOR UNKNOWN INDICATION
     Dosage: 20 MG; QD; PO; 30 MG, QD; PO; 20MG, QD, PO; 40 MG, QD, PO
     Route: 048
     Dates: start: 20000530
  4. PAROXETINE HCL [Suspect]
     Indication: DRUG USE FOR UNKNOWN INDICATION
     Dosage: 20 MG; QD; PO; 30 MG, QD; PO; 20MG, QD, PO; 40 MG, QD, PO
     Route: 048
     Dates: start: 20010501
  5. AMITRIPTLINE HYDROCHLORIDE TAB [Concomitant]
  6. CITALOPRAM HYDROBROMIDE [Concomitant]
  7. CITALOPRAM HYDROBROMIDE [Concomitant]
  8. DIAZEPAM [Concomitant]
  9. VENLAFAXINE HCL [Concomitant]
  10. SERTRALINE [Concomitant]
  11. FLUOXETINE HCL [Concomitant]
  12. VENLAFAXINE HCL [Concomitant]
  13. BENDROFLUMETHIAZIDE (BENDROFLUMETHIAZIDE) [Concomitant]

REACTIONS (34)
  - AGGRESSION [None]
  - AGITATION [None]
  - AGORAPHOBIA [None]
  - ANOREXIA [None]
  - ANXIETY [None]
  - BEREAVEMENT REACTION [None]
  - CONFUSIONAL STATE [None]
  - DECREASED APPETITE [None]
  - DEPRESSED MOOD [None]
  - DIARRHOEA [None]
  - DISTURBANCE IN ATTENTION [None]
  - DIZZINESS [None]
  - DRUG INEFFECTIVE [None]
  - DRUG WITHDRAWAL SYNDROME [None]
  - FATIGUE [None]
  - HYPERHIDROSIS [None]
  - HYPERTENSION [None]
  - HYPOAESTHESIA [None]
  - INFLUENZA [None]
  - INSOMNIA [None]
  - IRRITABILITY [None]
  - LETHARGY [None]
  - MEMORY IMPAIRMENT [None]
  - MOOD SWINGS [None]
  - NAUSEA [None]
  - NIGHTMARE [None]
  - PANIC ATTACK [None]
  - PARAESTHESIA [None]
  - SLEEP DISORDER [None]
  - SUICIDAL IDEATION [None]
  - TREMOR [None]
  - TRICHOTILLOMANIA [None]
  - VAGINAL CANDIDIASIS [None]
  - VOMITING [None]
